FAERS Safety Report 8120426-2 (Version None)
Quarter: 2012Q1

REPORT INFORMATION
  Report Type: 
  Country: None (occurrence: None)
  Receive Date: 20120207
  Receipt Date: 20120125
  Transmission Date: 20120608
  Serious: Yes (Hospitalization)
  Sender: FDA-Public Use
  Company Number: US-ELI_LILLY_AND_COMPANY-US201105004300

PATIENT
  Age: 77 Year
  Sex: Female
  Weight: 73.9 kg

DRUGS (3)
  1. FORTEO [Suspect]
     Indication: OSTEOPOROSIS
     Dosage: 20 UG, QD
     Route: 065
     Dates: start: 20100511
  2. PRINIVIL [Concomitant]
  3. CRESTOR [Concomitant]

REACTIONS (2)
  - BLOOD CALCIUM INCREASED [None]
  - MACULAR HOLE [None]
